FAERS Safety Report 9332020 (Version 2)
Quarter: 2013Q4

REPORT INFORMATION
  Report Type: Spontaneous
  Country: US (occurrence: US)
  Receive Date: 20130605
  Receipt Date: 20131118
  Transmission Date: 20140711
  Serious: Yes (Hospitalization)
  Sender: FDA-Public Use
  Company Number: US-B.I. PHARMACEUTICALS,INC./RIDGEFIELD-2013-BI-15602BP

PATIENT
  Age: 72 Year
  Sex: Male
  Weight: 81.65 kg

DRUGS (9)
  1. PRADAXA [Suspect]
     Indication: ANTICOAGULANT THERAPY
     Dates: start: 20110606, end: 20120531
  2. PRADAXA [Suspect]
     Indication: ATRIAL FIBRILLATION
  3. LOSARTAN [Concomitant]
  4. TOPROL [Concomitant]
  5. PRAVASTATIN [Concomitant]
  6. OMEPRAZOLE [Concomitant]
  7. ADVAIR [Concomitant]
  8. MIRAPEX [Concomitant]
  9. ASPIRIN [Concomitant]
     Dates: end: 20120531

REACTIONS (1)
  - Gastrointestinal haemorrhage [Recovered/Resolved]
